FAERS Safety Report 6495339-2 (Version None)
Quarter: 2009Q4

REPORT INFORMATION
  Report Type: 
  Country: None (occurrence: None)
  Receive Date: 20091214
  Receipt Date: 20090616
  Transmission Date: 20100525
  Serious: No
  Sender: FDA-Public Use
  Company Number: US-BRISTOL-MYERS SQUIBB COMPANY-14649461

PATIENT
  Age: 54 Year
  Sex: Male

DRUGS (2)
  1. ABILIFY [Suspect]
     Indication: MAJOR DEPRESSION
     Dosage: TAKEN FOR ONE MONTH
     Route: 048
     Dates: start: 20090520
  2. LEXAPRO [Suspect]
     Indication: MAJOR DEPRESSION
     Route: 048

REACTIONS (1)
  - DYSARTHRIA [None]
